FAERS Safety Report 19827560 (Version 4)
Quarter: 2022Q1

REPORT INFORMATION
  Report Type: Spontaneous
  Country: JP (occurrence: JP)
  Receive Date: 20210914
  Receipt Date: 20220210
  Transmission Date: 20220423
  Serious: Yes (Other)
  Sender: FDA-Public Use
  Company Number: JP-CELGENE-JPN-20210901735

PATIENT
  Age: 64 Year
  Sex: Male

DRUGS (3)
  1. REVLIMID [Suspect]
     Active Substance: LENALIDOMIDE
     Indication: Follicular lymphoma
     Route: 048
  2. RITUXAN [Concomitant]
     Active Substance: RITUXIMAB
     Indication: Follicular lymphoma
     Dosage: UNKNOWN
     Route: 041
  3. RITUXAN [Concomitant]
     Active Substance: RITUXIMAB
     Dosage: UNKNOWN
     Route: 041

REACTIONS (2)
  - Neutrophil count decreased [Recovered/Resolved]
  - Hydronephrosis [Recovering/Resolving]
